FAERS Safety Report 6704255-X (Version None)
Quarter: 2010Q2

REPORT INFORMATION
  Report Type: 
  Country: None (occurrence: None)
  Receive Date: 20100430
  Receipt Date: 20091005
  Transmission Date: 20101027
  Serious: No
  Sender: FDA-Public Use
  Company Number: US-TYCO HEALTHCARE/MALLINCKRODT-T200901863

PATIENT
  Sex: Male
  Weight: 86.168 kg

DRUGS (4)
  1. ACETAMINOPHEN AND HYDROCODONE BITARTRATE [Suspect]
     Indication: BACK PAIN
     Dosage: 1-2 TABS, Q 4 HOURS
     Route: 048
     Dates: start: 20090901, end: 20090901
  2. ACETAMINOPHEN AND HYDROCODONE BITARTRATE [Suspect]
     Indication: PAIN
     Dosage: 1-2 TABS, Q 4 HOURS
     Route: 048
     Dates: start: 20091002, end: 20091004
  3. NEXIUM [Concomitant]
     Indication: BARRETT'S OESOPHAGUS
     Dosage: 40 MG, BID
     Route: 048
  4. ZOLTON [Concomitant]
     Indication: GLAUCOMA
     Route: 047

REACTIONS (1)
  - TINNITUS [None]
